FAERS Safety Report 23571172 (Version 1)
Quarter: 2024Q1

REPORT INFORMATION
  Report Type: Spontaneous
  Country: US (occurrence: None)
  Receive Date: 20240226
  Receipt Date: 20240226
  Transmission Date: 20240409
  Serious: Yes (Other)
  Sender: FDA-Public Use
  Company Number: None

PATIENT
  Age: 32 Year
  Sex: Female
  Weight: 74.84 kg

DRUGS (1)
  1. SKYLA [Suspect]
     Active Substance: LEVONORGESTREL

REACTIONS (4)
  - Complication associated with device [None]
  - Ovarian cyst [None]
  - Adnexal torsion [None]
  - Impaired quality of life [None]

NARRATIVE: CASE EVENT DATE: 20230923
